FAERS Safety Report 7954477-5 (Version None)
Quarter: 2011Q4

REPORT INFORMATION
  Report Type: 
  Country: None (occurrence: None)
  Receive Date: 20111202
  Receipt Date: 20111129
  Transmission Date: 20120403
  Serious: Yes (Death, Life-Threatening, Hospitalization)
  Sender: FDA-Public Use
  Company Number: US-B.I. PHARMACEUTICALS,INC./RIDGEFIELD-2011-BP-25342BP

PATIENT
  Age: 87 Year
  Sex: Female
  Weight: 50.1 kg

DRUGS (6)
  1. PRADAXA [Suspect]
     Dosage: 150 MG
     Route: 048
     Dates: start: 20111027, end: 20111031
  2. FLECAINIDE ACETATE [Concomitant]
     Dates: start: 20111014
  3. DILTIAZEM HCL [Concomitant]
     Dosage: 240 MG
     Dates: start: 20110926
  4. CRESTOR [Concomitant]
     Dosage: 10 MG
     Dates: start: 20110110
  5. PRADAXA [Suspect]
     Indication: ATRIAL FIBRILLATION
     Dosage: 300 MG
     Route: 048
     Dates: start: 20110926, end: 20111027
  6. LORAZEPAM [Concomitant]
     Dosage: 0.5 MG

REACTIONS (10)
  - CARDIO-RESPIRATORY ARREST [None]
  - RECTAL HAEMORRHAGE [None]
  - HEAD INJURY [None]
  - BRADYCARDIA [None]
  - FALL [None]
  - CONTUSION [None]
  - GASTROINTESTINAL HAEMORRHAGE [None]
  - HYPOTENSION [None]
  - PULMONARY HAEMORRHAGE [None]
  - EPISTAXIS [None]
